FAERS Safety Report 18041488 (Version 1)
Quarter: 2020Q3

REPORT INFORMATION
  Report Type: Report from Study
  Country: None (occurrence: US)
  Receive Date: 20200719
  Receipt Date: 20200719
  Transmission Date: 20201103
  Serious: Yes (Other)
  Sender: FDA-Public Use
  Company Number: US-ABBVIE-20K-163-3332218-00

PATIENT
  Age: 34 Year
  Sex: Female

DRUGS (2)
  1. HUMIRA [Suspect]
     Active Substance: ADALIMUMAB
     Indication: COLITIS ULCERATIVE
     Route: 058
  2. HUMIRA [Suspect]
     Active Substance: ADALIMUMAB
     Indication: COLITIS ULCERATIVE
     Dosage: CITRATE FREE
     Route: 058

REACTIONS (14)
  - Fatigue [Unknown]
  - Tonsillitis [Unknown]
  - Injection site pain [Unknown]
  - Scar [Unknown]
  - Circumstance or information capable of leading to medication error [Unknown]
  - Memory impairment [Unknown]
  - Migraine [Unknown]
  - Headache [Unknown]
  - Sinus operation [Unknown]
  - Nasal congestion [Unknown]
  - Adenoidectomy [Unknown]
  - Inflammatory marker increased [Unknown]
  - Drug level abnormal [Unknown]
  - Inflammation [Unknown]

NARRATIVE: CASE EVENT DATE: 202001
